FAERS Safety Report 11611127 (Version 1)
Quarter: 2015Q4

REPORT INFORMATION
  Report Type: Spontaneous
  Country: BR (occurrence: BR)
  Receive Date: 20151008
  Receipt Date: 20151008
  Transmission Date: 20160304
  Serious: Yes (Other)
  Sender: FDA-Public Use
  Company Number: BR-JNJFOC-20151002204

PATIENT
  Age: 42 Year
  Sex: Female
  Weight: 82 kg

DRUGS (1)
  1. SIMPONI [Suspect]
     Active Substance: GOLIMUMAB
     Indication: RHEUMATOID ARTHRITIS
     Route: 058
     Dates: start: 2014, end: 2015

REACTIONS (4)
  - Tooth socket haemorrhage [Unknown]
  - Endodontic procedure [Unknown]
  - Dizziness [Not Recovered/Not Resolved]
  - Flavivirus infection [Recovered/Resolved]

NARRATIVE: CASE EVENT DATE: 201508
